FAERS Safety Report 7153367-8 (Version None)
Quarter: 2010Q4

REPORT INFORMATION
  Report Type: 
  Country: None (occurrence: None)
  Receive Date: 20101213
  Receipt Date: 20101129
  Transmission Date: 20110411
  Serious: Yes (Other)
  Sender: FDA-Public Use
  Company Number: PHHY2010US80924

PATIENT
  Age: 61 Year
  Sex: Male

DRUGS (4)
  1. GLEEVEC [Suspect]
     Indication: CHRONIC MYELOID LEUKAEMIA
     Dosage: 800 MG DAILY
     Dates: start: 20020101
  2. DASATINIB [Concomitant]
     Dosage: UNK
     Dates: start: 20070421
  3. HYDROXYUREA [Concomitant]
  4. BUSULFAN [Concomitant]

REACTIONS (10)
  - CHILLS [None]
  - CRYPTOCOCCOSIS [None]
  - CRYPTOCOCCUS TEST POSITIVE [None]
  - DRUG INEFFECTIVE [None]
  - DRUG RESISTANCE [None]
  - LUNG INFILTRATION [None]
  - MENINGITIS [None]
  - MENTAL STATUS CHANGES [None]
  - PNEUMONIA [None]
  - PYREXIA [None]
